FAERS Safety Report 5934472-8 (Version None)
Quarter: 2008Q4

REPORT INFORMATION
  Report Type: 
  Country: None (occurrence: None)
  Receive Date: 20081029
  Receipt Date: 20081022
  Transmission Date: 20090506
  Serious: Yes (Other)
  Sender: FDA-Public Use
  Company Number: CH-PFIZER INC-2008044745

PATIENT
  Sex: Male
  Weight: 70 kg

DRUGS (7)
  1. CHAMPIX [Suspect]
     Indication: SMOKING CESSATION THERAPY
     Route: 048
     Dates: start: 20080310
  2. TRIOFAN [Concomitant]
     Route: 045
  3. NICOTINELL GUM [Concomitant]
     Route: 048
     Dates: start: 20080517
  4. NICORETTE [Concomitant]
  5. NICOTINELL LOZENGE [Concomitant]
     Route: 048
     Dates: start: 20080517
  6. FIBRE, DIETARY [Concomitant]
     Route: 048
     Dates: start: 20080501
  7. SEDONIUM [Concomitant]
     Route: 048
     Dates: start: 20080517

REACTIONS (3)
  - FEELING DRUNK [None]
  - IMPAIRED HEALING [None]
  - SCINTILLATING SCOTOMA [None]
